FAERS Safety Report 13618637 (Version 1)
Quarter: 2017Q2

REPORT INFORMATION
  Report Type: Spontaneous
  Country: US (occurrence: US)
  Receive Date: 20170606
  Receipt Date: 20170606
  Transmission Date: 20170830
  Serious: No
  Sender: FDA-Public Use
  Company Number: US-009507513-1705USA012179

PATIENT
  Sex: Female

DRUGS (2)
  1. BELSOMRA [Suspect]
     Active Substance: SUVOREXANT
     Indication: INSOMNIA
     Dosage: 20 MG DAILY
     Route: 048
  2. BELSOMRA [Suspect]
     Active Substance: SUVOREXANT
     Dosage: 20MG DAILY; ADDITIONAL 20MG TABLET WITHIN THE 7 OR 8 HOUR WINDOW AFTER TAKING THE FIRST ONE
     Route: 048

REACTIONS (2)
  - Stress [Unknown]
  - Intentional overdose [Unknown]
